FAERS Safety Report 10183739 (Version 2)
Quarter: 2014Q2

REPORT INFORMATION
  Report Type: Spontaneous
  Country: JP (occurrence: JP)
  Receive Date: 20140520
  Receipt Date: 20140520
  Transmission Date: 20141212
  Serious: Yes (Hospitalization)
  Sender: FDA-Public Use
  Company Number: JP-BRISTOL-MYERS SQUIBB COMPANY-20674941

PATIENT
  Age: 8 Decade
  Sex: Female

DRUGS (2)
  1. ELIQUIS [Suspect]
     Indication: CEREBROVASCULAR ACCIDENT PROPHYLAXIS
     Dosage: TABS
     Route: 048
     Dates: start: 20140312
  2. ELIQUIS [Suspect]
     Indication: THROMBOSIS PROPHYLAXIS
     Dosage: TABS
     Route: 048
     Dates: start: 20140312

REACTIONS (1)
  - Diarrhoea [Not Recovered/Not Resolved]
